FAERS Safety Report 12187077 (Version 1)
Quarter: 2016Q1

REPORT INFORMATION
  Report Type: Spontaneous
  Country: US (occurrence: US)
  Receive Date: 20160317
  Receipt Date: 20160317
  Transmission Date: 20160526
  Serious: No
  Sender: FDA-Public Use
  Company Number: US-TEVA-637097ACC

PATIENT
  Sex: Female

DRUGS (1)
  1. PLAN B ONE-STEP [Suspect]
     Active Substance: LEVONORGESTREL
     Indication: POST COITAL CONTRACEPTION
     Dates: start: 20160115, end: 20160115

REACTIONS (8)
  - Headache [Recovered/Resolved]
  - Vaginal discharge [Not Recovered/Not Resolved]
  - Abdominal pain [Not Recovered/Not Resolved]
  - Breast discharge [Recovered/Resolved]
  - Nausea [Not Recovered/Not Resolved]
  - Cervix disorder [Not Recovered/Not Resolved]
  - Vaginal haemorrhage [Recovered/Resolved]
  - Fatigue [Recovered/Resolved]

NARRATIVE: CASE EVENT DATE: 20160115
